FAERS Safety Report 4735614-2 (Version None)
Quarter: 2005Q3

REPORT INFORMATION
  Report Type: 
  Country: None (occurrence: None)
  Receive Date: 20050805
  Receipt Date: 20050520
  Transmission Date: 20060218
  Serious: Yes (Hospitalization)
  Sender: FDA-Public Use
  Company Number: 2005/0501253

PATIENT
  Age: 48 Year
  Sex: Male
  Weight: 85.5 kg

DRUGS (15)
  1. CARVEDILOL [Suspect]
     Indication: BLOOD PRESSURE
     Dosage: 25MG TWICE PER DAY
     Route: 048
     Dates: start: 20050407
  2. BLINDED TRIAL MEDICATION [Suspect]
     Indication: CARDIAC FAILURE
     Route: 042
     Dates: start: 20050120, end: 20050420
  3. FUROSEMIDE [Suspect]
     Indication: FLUID RETENTION
     Route: 048
     Dates: start: 20040505
  4. ENALAPRIL MALEATE [Suspect]
     Indication: CORONARY ARTERY DISEASE
     Dosage: 10MG PER DAY
     Route: 048
     Dates: start: 20050428
  5. METOLAZONE [Suspect]
     Indication: FLUID RETENTION
     Dosage: 2.5MG PER DAY
     Route: 048
     Dates: start: 20050413
  6. VALSARTAN [Suspect]
     Indication: CARDIAC DISORDER
     Dosage: 80MG PER DAY
     Route: 048
     Dates: start: 20040930
  7. GEMFIBROZIL [Concomitant]
     Dosage: 600MG TWICE PER DAY
     Route: 048
     Dates: start: 20050428
  8. FOLIC ACID [Concomitant]
     Dosage: 1MG PER DAY
     Route: 048
     Dates: start: 20040812
  9. FERROUS SULFATE TAB [Concomitant]
     Dosage: 325MG THREE TIMES PER DAY
     Route: 048
     Dates: start: 20050505
  10. CYANOCOBALAMIN [Concomitant]
     Indication: NUTRITIONAL SUPPORT
     Dosage: 1000UG PER DAY
     Route: 048
  11. POTASSIUM CHLORIDE [Concomitant]
     Dosage: 10MEQ PER DAY
     Route: 048
     Dates: start: 20040505
  12. INSULIN NOVOLIN [Concomitant]
     Indication: DIABETES MELLITUS
     Dosage: 40IU TWICE PER DAY
     Route: 058
     Dates: start: 20050428
  13. SIMVASTATIN [Concomitant]
     Dosage: 10MG PER DAY
     Route: 048
     Dates: start: 20050413
  14. DIGOXIN [Concomitant]
     Dosage: .25MG PER DAY
     Route: 048
     Dates: start: 20040505
  15. TRAVOPROST [Concomitant]
     Indication: GLAUCOMA
     Dates: start: 20040812

REACTIONS (23)
  - ACUTE PRERENAL FAILURE [None]
  - ANOREXIA [None]
  - ARTHRALGIA [None]
  - BLOOD CHLORIDE DECREASED [None]
  - BLOOD CREATININE INCREASED [None]
  - BLOOD GLUCOSE INCREASED [None]
  - BLOOD SODIUM DECREASED [None]
  - BLOOD UREA INCREASED [None]
  - C-REACTIVE PROTEIN INCREASED [None]
  - CHEST PAIN [None]
  - DIABETES MELLITUS INADEQUATE CONTROL [None]
  - DIZZINESS [None]
  - HAEMATOCHEZIA [None]
  - HAEMATOCRIT DECREASED [None]
  - HAEMOGLOBIN DECREASED [None]
  - HYPOTENSION [None]
  - MALAISE [None]
  - PAIN [None]
  - POLYDIPSIA [None]
  - POLYURIA [None]
  - RENAL FAILURE ACUTE [None]
  - WEIGHT DECREASED [None]
  - WHITE BLOOD CELL COUNT INCREASED [None]
